FAERS Safety Report 7054036-5 (Version None)
Quarter: 2010Q4

REPORT INFORMATION
  Report Type: 
  Country: None (occurrence: None)
  Receive Date: 20101020
  Receipt Date: 20101011
  Transmission Date: 20110411
  Serious: Yes (Hospitalization, Other)
  Sender: FDA-Public Use
  Company Number: IT-TEVA-251856ISR

PATIENT
  Age: 24 Year
  Sex: Female

DRUGS (2)
  1. VENLAFAXINE [Suspect]
     Indication: MAJOR DEPRESSION
  2. LORAZEPAM [Concomitant]

REACTIONS (6)
  - ASTHENIA [None]
  - COTARD'S SYNDROME [None]
  - CRYING [None]
  - DEPRESSION [None]
  - DISTURBANCE IN ATTENTION [None]
  - LOSS OF LIBIDO [None]
